FAERS Safety Report 13967670 (Version 2)
Quarter: 2017Q4

REPORT INFORMATION
  Report Type: Spontaneous
  Country: GB (occurrence: GB)
  Receive Date: 20170914
  Receipt Date: 20171012
  Transmission Date: 20180320
  Serious: Yes (Other)
  Sender: FDA-Public Use
  Company Number: GB-SUN PHARMACEUTICAL INDUSTRIES LTD-2017RR-149165

PATIENT
  Age: 19 Year
  Sex: Male
  Weight: 72 kg

DRUGS (2)
  1. CYCLIZINE HYDROCHLORIDE [Concomitant]
     Active Substance: CYCLIZINE HYDROCHLORIDE
     Indication: PRODUCT USED FOR UNKNOWN INDICATION
     Dosage: UNK
     Route: 065
  2. VENLAFAXINE [Suspect]
     Active Substance: VENLAFAXINE HYDROCHLORIDE
     Indication: ANXIETY
     Dosage: 37.5 MG, ONE AT NIGHT FOR 1 WEEK. THEN ONE TWICE DAILY.
     Route: 048
     Dates: start: 20170425

REACTIONS (6)
  - Pyrexia [Unknown]
  - Tremor [Unknown]
  - Hyperhidrosis [Unknown]
  - Serotonin syndrome [Recovered/Resolved]
  - Nausea [Unknown]
  - Agitation [Unknown]

NARRATIVE: CASE EVENT DATE: 20170425
